FAERS Safety Report 17698800 (Version 9)
Quarter: 2020Q4

REPORT INFORMATION
  Report Type: Report from Study
  Country: CA (occurrence: CA)
  Receive Date: 20200423
  Receipt Date: 20201125
  Transmission Date: 20210113
  Serious: Yes (Hospitalization, Other)
  Sender: FDA-Public Use
  Company Number: NVSC2020CA079133

PATIENT
  Age: 51 Year
  Sex: Female

DRUGS (5)
  1. SANDOSTATIN LAR DEPOT [Suspect]
     Active Substance: OCTREOTIDE ACETATE
     Dosage: 60 MG, Q3W
     Route: 030
     Dates: start: 20200122
  2. FUROSEMIDE. [Concomitant]
     Active Substance: FUROSEMIDE
     Indication: PRODUCT USED FOR UNKNOWN INDICATION
     Dosage: 20 MG, BID
     Route: 048
     Dates: start: 20200219
  3. SANDOSTATIN LAR DEPOT [Suspect]
     Active Substance: OCTREOTIDE ACETATE
     Indication: CARCINOID TUMOUR
     Dosage: 30 MG, Q4W
     Route: 030
     Dates: start: 20200122
  4. SANDOSTATIN LAR DEPOT [Suspect]
     Active Substance: OCTREOTIDE ACETATE
     Dosage: 30 MG, Q4W (VIAL)
     Route: 030
     Dates: start: 20200413
  5. SANDOSTATIN LAR DEPOT [Suspect]
     Active Substance: OCTREOTIDE ACETATE
     Dosage: 30 MG, Q4W (SYRINGE)
     Route: 030
     Dates: start: 20200413

REACTIONS (14)
  - Hypotension [Unknown]
  - Pyrexia [Unknown]
  - Injection site mass [Unknown]
  - Needle issue [Unknown]
  - Haemoglobin decreased [Unknown]
  - Urine output decreased [Recovered/Resolved with Sequelae]
  - Inappropriate schedule of product administration [Unknown]
  - Abdominal pain [Unknown]
  - Oedema [Unknown]
  - Post procedural complication [Unknown]
  - Stoma obstruction [Recovered/Resolved]
  - Secretion discharge [Unknown]
  - Fatigue [Unknown]
  - Cystitis [Unknown]

NARRATIVE: CASE EVENT DATE: 202003
